FAERS Safety Report 20811686 (Version 4)
Quarter: 2023Q2

REPORT INFORMATION
  Report Type: Spontaneous
  Country: CA (occurrence: CA)
  Receive Date: 20220510
  Receipt Date: 20230519
  Transmission Date: 20230721
  Serious: Yes (Death, Hospitalization, Other)
  Sender: FDA-Public Use
  Company Number: CA-SAMSUNG BIOEPIS-SB-2022-11003

PATIENT
  Age: 73 Year
  Sex: Male
  Weight: 61 kg

DRUGS (15)
  1. INFLIXIMAB [Suspect]
     Active Substance: INFLIXIMAB
     Indication: Colitis ulcerative
     Route: 042
  2. INFLIXIMAB [Suspect]
     Active Substance: INFLIXIMAB
     Route: 042
  3. INFLIXIMAB [Suspect]
     Active Substance: INFLIXIMAB
     Route: 042
  4. INFLIXIMAB [Suspect]
     Active Substance: INFLIXIMAB
     Route: 042
  5. CYANOCOBALAMIN [Concomitant]
     Active Substance: CYANOCOBALAMIN
     Indication: Product used for unknown indication
     Dosage: UNKNOWN
     Route: 051
  6. CYANOCOBALAMIN [Concomitant]
     Active Substance: CYANOCOBALAMIN
     Route: 065
  7. FOLIC ACID [Concomitant]
     Active Substance: FOLIC ACID
     Indication: Product used for unknown indication
     Route: 048
  8. FOLIC ACID [Concomitant]
     Active Substance: FOLIC ACID
     Route: 048
  9. METHOTREXATE [Concomitant]
     Active Substance: METHOTREXATE
     Indication: Product used for unknown indication
     Route: 048
  10. PREDNISONE [Concomitant]
     Active Substance: PREDNISONE
     Indication: Product used for unknown indication
     Route: 065
  11. SILDENAFIL [Concomitant]
     Active Substance: SILDENAFIL
     Indication: Product used for unknown indication
     Dosage: UNKNOWN, FREQUENCY: AS REQUIRED
     Route: 048
  12. SILDENAFIL [Concomitant]
     Active Substance: SILDENAFIL
     Dosage: AS REQUIRED
     Route: 048
  13. TADALAFIL [Concomitant]
     Active Substance: TADALAFIL
     Indication: Product used for unknown indication
     Dosage: UNKNOWN, FREQUENCY: AS REQUIRED
     Route: 048
  14. TADALAFIL [Concomitant]
     Active Substance: TADALAFIL
     Route: 048
  15. TESTOSTERONE [Concomitant]
     Active Substance: TESTOSTERONE
     Indication: Product used for unknown indication
     Route: 048

REACTIONS (26)
  - Death [Fatal]
  - Back injury [Fatal]
  - Blood pressure increased [Fatal]
  - Decreased appetite [Fatal]
  - Defaecation urgency [Fatal]
  - Diarrhoea [Fatal]
  - Impaired quality of life [Fatal]
  - Injection site pain [Fatal]
  - Joint injury [Fatal]
  - Limb injury [Fatal]
  - Neck injury [Fatal]
  - Pulmonary fibrosis [Fatal]
  - Road traffic accident [Fatal]
  - Soft tissue injury [Fatal]
  - Weight decreased [Fatal]
  - Fatigue [Fatal]
  - Dyspnoea [Fatal]
  - Asthenia [Fatal]
  - Bedridden [Fatal]
  - Condition aggravated [Fatal]
  - Depressed mood [Fatal]
  - Pneumothorax [Fatal]
  - Weight bearing difficulty [Fatal]
  - Off label use [Fatal]
  - Intentional product use issue [Fatal]
  - Inappropriate schedule of product administration [Fatal]
